FAERS Safety Report 18236211 (Version 1)
Quarter: 2020Q3

REPORT INFORMATION
  Report Type: Spontaneous
  Country: JP (occurrence: JP)
  Receive Date: 20200906
  Receipt Date: 20200906
  Transmission Date: 20201103
  Serious: Yes (Hospitalization)
  Sender: FDA-Public Use
  Company Number: JP-BRISTOL-MYERS SQUIBB COMPANY-BMS-2020-069749

PATIENT
  Sex: Female

DRUGS (1)
  1. KENACORT?A [Suspect]
     Active Substance: TRIAMCINOLONE ACETONIDE
     Indication: TENOSYNOVITIS
     Dosage: UNAVAILABLE
     Route: 065

REACTIONS (5)
  - Purulence [Unknown]
  - Inflammation [Unknown]
  - Erythema [Unknown]
  - Pyrexia [Unknown]
  - Pain [Unknown]
